FAERS Safety Report 11642163 (Version 1)
Quarter: 2015Q4

REPORT INFORMATION
  Report Type: Spontaneous
  Country: CA (occurrence: CA)
  Receive Date: 20151019
  Receipt Date: 20151019
  Transmission Date: 20160304
  Serious: Yes (Other)
  Sender: FDA-Public Use
  Company Number: CA-009507513-1510CAN007223

PATIENT
  Sex: Male

DRUGS (1)
  1. TEMODAL [Suspect]
     Active Substance: TEMOZOLOMIDE
     Indication: OLIGOASTROCYTOMA
     Dosage: 440 MG, DAILY FOR 5 DAYS EVERY 4 WEEKS / PER CYCLE (HAD RECEIVED 4 OF 12 PLANNED CYCLES)
     Route: 048
     Dates: start: 20150526

REACTIONS (2)
  - Subdural haematoma [Unknown]
  - Neoplasm progression [Unknown]

NARRATIVE: CASE EVENT DATE: 2015
